FAERS Safety Report 23323413 (Version 1)
Quarter: 2023Q4

REPORT INFORMATION
  Report Type: Spontaneous
  Country: GB (occurrence: GB)
  Receive Date: 20231220
  Receipt Date: 20231220
  Transmission Date: 20240110
  Serious: Yes (Hospitalization, Other)
  Sender: FDA-Public Use
  Company Number: None

PATIENT
  Age: 71 Year
  Sex: Male

DRUGS (1)
  1. DAPTOMYCIN [Suspect]
     Active Substance: DAPTOMYCIN
     Indication: Osteomyelitis
     Dosage: HIGH DOSE

REACTIONS (7)
  - Dyspnoea [Unknown]
  - Pneumonia [Unknown]
  - Left ventricular failure [Unknown]
  - Pulmonary oedema [Unknown]
  - Renal impairment [Unknown]
  - White blood cell count abnormal [Unknown]
  - C-reactive protein abnormal [Unknown]

NARRATIVE: CASE EVENT DATE: 20231125
